FAERS Safety Report 24252135 (Version 1)
Quarter: 2024Q3

REPORT INFORMATION
  Report Type: Report from Study
  Country: FR (occurrence: FR)
  Receive Date: 20240827
  Receipt Date: 20240827
  Transmission Date: 20241016
  Serious: Yes (Congenital Anomaly, Other)
  Sender: AUROBINDO
  Company Number: FR-GLAXOSMITHKLINE-FR2024GSK098997

PATIENT

DRUGS (2)
  1. VALACYCLOVIR HYDROCHLORIDE [Suspect]
     Active Substance: VALACYCLOVIR HYDROCHLORIDE
     Indication: Cytomegalovirus infection
     Dosage: UNK
     Route: 064
  2. VALGANCICLOVIR [Suspect]
     Active Substance: VALGANCICLOVIR
     Indication: Cytomegalovirus infection
     Dosage: 450 MILLIGRAM, 3 TIMES A DAY
     Route: 064
     Dates: start: 202101

REACTIONS (11)
  - Deafness congenital [Unknown]
  - Thrombocytopenia [Unknown]
  - Neonatal hepatomegaly [Unknown]
  - Hyperbilirubinaemia [Unknown]
  - Hepatosplenomegaly neonatal [Unknown]
  - Hypotonia neonatal [Unknown]
  - Petechiae [Unknown]
  - Cell death [Unknown]
  - Cerebral ventricle dilatation [Unknown]
  - Subependymal cyst [Unknown]
  - Foetal exposure during pregnancy [Unknown]
